FAERS Safety Report 4281829-X (Version None)
Quarter: 2004Q1

REPORT INFORMATION
  Report Type: 
  Country: None (occurrence: None)
  Receive Date: 20040128
  Receipt Date: 20031024
  Transmission Date: 20041129
  Serious: Yes (Death)
  Sender: FDA-Public Use
  Company Number: 028-20785-03100709

PATIENT
  Age: 49 Year
  Sex: Male

DRUGS (5)
  1. THALOMID [Suspect]
     Indication: MULTIPLE MYELOMA
     Dosage: 200 MG, DAILY, ORAL
     Route: 048
     Dates: start: 20030101, end: 20030101
  2. PAMIDRONATE DISODIUM [Concomitant]
  3. PREDNISONE [Concomitant]
  4. CYLOPHOSPHAMIDE (CYCLOPHOSPHAMIDE) [Concomitant]
  5. SOLU-MEDROL [Concomitant]

REACTIONS (5)
  - INFECTION [None]
  - MALIGNANT NEOPLASM PROGRESSION [None]
  - MULTIPLE MYELOMA [None]
  - POSTOPERATIVE INFECTION [None]
  - RENAL FAILURE [None]
